FAERS Safety Report 4410662-0 (Version None)
Quarter: 2004Q3

REPORT INFORMATION
  Report Type: 
  Country: None (occurrence: None)
  Receive Date: 20040726
  Receipt Date: 20040712
  Transmission Date: 20050211
  Serious: Yes (Other)
  Sender: FDA-Public Use
  Company Number: 8455

PATIENT
  Age: 4 Year
  Sex: Male

DRUGS (1)
  1. METHOTREXATE [Suspect]
     Indication: BURKITT'S LYMPHOMA STAGE IV
     Dosage: 6 MG PER CYCLE INVEN

REACTIONS (7)
  - CENTRAL NERVOUS SYSTEM LYMPHOMA [None]
  - CSF TEST ABNORMAL [None]
  - DEVELOPMENTAL DELAY [None]
  - IRRITABILITY [None]
  - MALIGNANT NEOPLASM PROGRESSION [None]
  - MENTAL STATUS CHANGES [None]
  - SOMNOLENCE [None]
